FAERS Safety Report 20580896 (Version 2)
Quarter: 2022Q1

REPORT INFORMATION
  Report Type: Report from Study
  Country: US (occurrence: US)
  Receive Date: 20220311
  Receipt Date: 20220321
  Transmission Date: 20220423
  Serious: Yes (Other)
  Sender: FDA-Public Use
  Company Number: US-NOVOPROD-898288

PATIENT
  Sex: Female

DRUGS (2)
  1. NOVOLOG [Suspect]
     Active Substance: INSULIN ASPART
     Indication: Type 2 diabetes mellitus
     Dosage: 50 UNITS, 2UNITS PER SLIDING
     Route: 058
  2. TRESIBA [Suspect]
     Active Substance: INSULIN DEGLUDEC
     Indication: Type 2 diabetes mellitus
     Dosage: 15 IU QHS
     Route: 058

REACTIONS (8)
  - Diabetic retinopathy [Unknown]
  - Cataract diabetic [Unknown]
  - Deafness [Not Recovered/Not Resolved]
  - Generalised oedema [Unknown]
  - Sensory disturbance [Unknown]
  - Fatigue [Unknown]
  - Dyspnoea exertional [Unknown]
  - Dyspnoea [Unknown]
